FAERS Safety Report 22358097 (Version 3)
Quarter: 2023Q2

REPORT INFORMATION
  Report Type: Spontaneous
  Country: US (occurrence: US)
  Receive Date: 20230524
  Receipt Date: 20230619
  Transmission Date: 20230722
  Serious: No
  Sender: FDA-Public Use
  Company Number: US-ELI_LILLY_AND_COMPANY-US202305012963

PATIENT
  Sex: Male

DRUGS (3)
  1. BASAGLAR [Suspect]
     Active Substance: INSULIN GLARGINE
     Indication: Product used for unknown indication
     Dosage: 30 U, UNKNOWN
     Route: 065
     Dates: start: 20230512
  2. BASAGLAR [Suspect]
     Active Substance: INSULIN GLARGINE
     Indication: Product used for unknown indication
     Dosage: 30 U, UNKNOWN
     Route: 065
     Dates: start: 20230512
  3. BASAGLAR [Suspect]
     Active Substance: INSULIN GLARGINE
     Dosage: 30 U, UNKNOWN
     Route: 065
     Dates: start: 20230512

REACTIONS (2)
  - Incorrect dose administered [Unknown]
  - Visual impairment [Unknown]
